FAERS Safety Report 15206263 (Version 2)
Quarter: 2018Q3

REPORT INFORMATION
  Report Type: Report from Study
  Country: None (occurrence: US)
  Receive Date: 20180727
  Receipt Date: 20180813
  Transmission Date: 20181010
  Serious: Yes (Other)
  Sender: FDA-Public Use
  Company Number: US-ABBVIE-18S-163-2429410-00

PATIENT
  Sex: Female

DRUGS (1)
  1. DUOPA [Suspect]
     Active Substance: CARBIDOPA\LEVODOPA
     Indication: PARKINSON^S DISEASE
     Dosage: REPORTER DID NOT HAVE DOSING INFORMATION FOR THE PATIENT.
     Route: 050

REACTIONS (5)
  - Dry mouth [Unknown]
  - Stoma site discharge [Unknown]
  - Anaemia [Not Recovered/Not Resolved]
  - Stoma site reaction [Unknown]
  - Knee operation [Unknown]
